FAERS Safety Report 10071686 (Version 2)
Quarter: 2014Q2

REPORT INFORMATION
  Report Type: Spontaneous
  Country: US (occurrence: US)
  Receive Date: 20140411
  Receipt Date: 20140418
  Transmission Date: 20141212
  Serious: Yes (Hospitalization, Other)
  Sender: FDA-Public Use
  Company Number: US-009507513-1404USA005009

PATIENT
  Sex: Female

DRUGS (5)
  1. JANUMET XR [Suspect]
     Indication: DIABETES MELLITUS
     Dosage: 50MG/1000MG
     Route: 048
     Dates: start: 201403
  2. JANUMET [Suspect]
     Indication: DIABETES MELLITUS
     Dosage: 50MG/500MG, BID
     Route: 048
     Dates: start: 201303, end: 201403
  3. PRINZIDE [Concomitant]
     Route: 048
  4. ZOCOR [Concomitant]
     Route: 048
  5. GLYBURIDE [Concomitant]

REACTIONS (1)
  - Pancreatitis [Unknown]
